FAERS Safety Report 25203336 (Version 1)
Quarter: 2025Q2

REPORT INFORMATION
  Report Type: Spontaneous
  Country: US (occurrence: US)
  Receive Date: 20250416
  Receipt Date: 20250416
  Transmission Date: 20250716
  Serious: Yes (Other)
  Sender: CHIESI
  Company Number: US-CHIESI-2025CHF02506

PATIENT
  Age: 56 Year
  Sex: Female

DRUGS (1)
  1. JUXTAPID [Suspect]
     Active Substance: LOMITAPIDE MESYLATE
     Indication: Product used for unknown indication
     Route: 065

REACTIONS (6)
  - Fungal oesophagitis [Recovering/Resolving]
  - Intestinal ulcer [Recovering/Resolving]
  - Myocardial infarction [Recovering/Resolving]
  - Dysphagia [Recovering/Resolving]
  - Melanocytic naevus [Recovering/Resolving]
  - Abdominal discomfort [Recovering/Resolving]

NARRATIVE: CASE EVENT DATE: 20240701
